FAERS Safety Report 12877288 (Version 1)
Quarter: 2016Q4

REPORT INFORMATION
  Report Type: Spontaneous
  Country: GB (occurrence: GB)
  Receive Date: 20161024
  Receipt Date: 20161024
  Transmission Date: 20170207
  Serious: Yes (Other)
  Sender: FDA-Public Use
  Company Number: GB-ROCHE-1845269

PATIENT
  Age: 74 Year
  Sex: Male

DRUGS (1)
  1. ORLISTAT [Suspect]
     Active Substance: ORLISTAT
     Indication: PRODUCT USED FOR UNKNOWN INDICATION
     Route: 065
     Dates: start: 2008, end: 2015

REACTIONS (2)
  - Nephropathy [Unknown]
  - Diabetic nephropathy [Unknown]
